FAERS Safety Report 4862345-0 (Version None)
Quarter: 2005Q4

REPORT INFORMATION
  Report Type: 
  Country: None (occurrence: None)
  Receive Date: 20051221
  Receipt Date: 20051209
  Transmission Date: 20060501
  Serious: Yes (Other)
  Sender: FDA-Public Use
  Company Number: CA-BRISTOL-MYERS SQUIBB COMPANY-13219720

PATIENT
  Age: 77 Year
  Sex: Female

DRUGS (10)
  1. TEQUIN [Suspect]
     Route: 048
  2. ADVAIR DISKUS 250/50 [Concomitant]
  3. CELEBREX [Concomitant]
     Route: 048
  4. ENALAPRIL [Concomitant]
  5. FUROSEMIDE [Concomitant]
  6. GLYBURIDE [Concomitant]
  7. LOVASTATIN [Concomitant]
     Route: 048
  8. METOLAZONE [Concomitant]
  9. VERAPAMIL [Concomitant]
  10. WARFARIN [Concomitant]

REACTIONS (3)
  - HYPOGLYCAEMIA [None]
  - LOSS OF CONSCIOUSNESS [None]
  - SLEEP APNOEA SYNDROME [None]
